FAERS Safety Report 4548295-8 (Version None)
Quarter: 2005Q1

REPORT INFORMATION
  Report Type: 
  Country: None (occurrence: None)
  Receive Date: 20050106
  Receipt Date: 20050106
  Transmission Date: 20050727
  Serious: Yes (Life-Threatening, Hospitalization, Disabling)
  Sender: FDA-Public Use
  Company Number: None

PATIENT
  Age: 57 Year
  Sex: Male
  Weight: 88.4514 kg

DRUGS (2)
  1. BEXTRA [Suspect]
     Indication: BACK PAIN
     Dosage: 20 MG DAILY
     Dates: start: 20031122, end: 20040414
  2. LOTENSIN HCT [Concomitant]

REACTIONS (2)
  - POOR PERIPHERAL CIRCULATION [None]
  - THROMBOSIS [None]
